FAERS Safety Report 10156427 (Version 3)
Quarter: 2014Q4

REPORT INFORMATION
  Report Type: Report from Study
  Country: GB (occurrence: None)
  Receive Date: 20140505
  Receipt Date: 20141202
  Transmission Date: 20150528
  Serious: Yes (Hospitalization)
  Sender: FDA-Public Use
  Company Number: GB-015521

PATIENT
  Age: 65 Year
  Sex: Male
  Weight: 85.9 kg

DRUGS (18)
  1. FIRMAGON [Suspect]
     Active Substance: DEGARELIX ACETATE
     Indication: PROSTATE CANCER
     Route: 058
     Dates: start: 20121123, end: 20121123
  2. SIMVASTATIN. [Concomitant]
     Active Substance: SIMVASTATIN
  3. LISINOPRIL. [Concomitant]
     Active Substance: LISINOPRIL
  4. GLYCERYL TRINITRTAE [Concomitant]
  5. BICALUTAMIDE. [Concomitant]
     Active Substance: BICALUTAMIDE
  6. ORAMORPH SR SUSTAINED RELEASE [Concomitant]
     Active Substance: MORPHINE SULFATE
  7. GAVISCON [Concomitant]
     Active Substance: ALUMINUM HYDROXIDE\MAGNESIUM CARBONATE
  8. DEXAMETHASONE. [Concomitant]
     Active Substance: DEXAMETHASONE
  9. BISOPRISOL [Concomitant]
  10. VITAMIN B12 [Concomitant]
     Active Substance: CYANOCOBALAMIN
  11. FUROSEMIDE. [Concomitant]
     Active Substance: FUROSEMIDE
  12. ZOMORPH [Concomitant]
     Active Substance: MORPHINE SULFATE
  13. METOPROLOL [Concomitant]
     Active Substance: METOPROLOL
  14. LANSOPRAZOLE. [Concomitant]
     Active Substance: LANSOPRAZOLE
  15. NAPROXEN. [Concomitant]
     Active Substance: NAPROXEN
  16. GABAPENTIN. [Concomitant]
     Active Substance: GABAPENTIN
  17. ASPIRIN. [Concomitant]
     Active Substance: ASPIRIN
  18. PARACETAMOL [Concomitant]
     Active Substance: ACETAMINOPHEN

REACTIONS (3)
  - Prostate cancer [None]
  - Epistaxis [None]
  - Thrombocytopenia [None]

NARRATIVE: CASE EVENT DATE: 20131219
